FAERS Safety Report 7181152-X (Version None)
Quarter: 2010Q4

REPORT INFORMATION
  Report Type: 
  Country: None (occurrence: None)
  Receive Date: 20101221
  Receipt Date: 20100419
  Transmission Date: 20110411
  Serious: No
  Sender: FDA-Public Use
  Company Number: US-AMGEN-TCS407264

PATIENT

DRUGS (2)
  1. ENBREL [Suspect]
     Indication: RHEUMATOID ARTHRITIS
     Dosage: 50 MG, QWK
     Route: 058
  2. METHOTREXATE [Concomitant]
     Dosage: 2.5 MG, 4 TIMES/WK

REACTIONS (6)
  - GINGIVAL SWELLING [None]
  - PYREXIA [None]
  - ROAD TRAFFIC ACCIDENT [None]
  - TOOTH FRACTURE [None]
  - TOOTH INFECTION [None]
  - TOOTH INJURY [None]
